FAERS Safety Report 12340837 (Version 1)
Quarter: 2016Q2

REPORT INFORMATION
  Report Type: Spontaneous
  Country: US (occurrence: US)
  Receive Date: 20160506
  Receipt Date: 20160506
  Transmission Date: 20160815
  Serious: No
  Sender: FDA-Public Use
  Company Number: US-009507513-1604USA005819

PATIENT
  Age: 72 Year
  Sex: Female

DRUGS (5)
  1. TRIAMTERENE. [Concomitant]
     Active Substance: TRIAMTERENE
     Dosage: 0.5 DF, QD
  2. ASCORBIC ACID. [Concomitant]
     Active Substance: ASCORBIC ACID
  3. VITAMIN D [Concomitant]
     Active Substance: CHOLECALCIFEROL
  4. NASONEX [Suspect]
     Active Substance: MOMETASONE FUROATE
     Indication: ANTIALLERGIC THERAPY
     Dosage: ONCE DAILY PM BEFORE BED, QPM
     Route: 045
     Dates: start: 201601, end: 201603
  5. VITAMIN E [Concomitant]
     Active Substance: .ALPHA.-TOCOPHEROL

REACTIONS (2)
  - Product quality issue [Unknown]
  - Epistaxis [Not Recovered/Not Resolved]

NARRATIVE: CASE EVENT DATE: 201603
